FAERS Safety Report 8249328-8 (Version None)
Quarter: 2012Q2

REPORT INFORMATION
  Report Type: 
  Country: None (occurrence: None)
  Receive Date: 20120402
  Receipt Date: 20120327
  Transmission Date: 20120825
  Serious: Yes (Life-Threatening, Hospitalization, Other)
  Sender: FDA-Public Use
  Company Number: US-US-EMD SERONO, INC.-7117371

PATIENT
  Sex: Male
  Weight: 96 kg

DRUGS (2)
  1. UNSPECIFIED MEDICATIONS (27) [Concomitant]
     Indication: PRODUCT USED FOR UNKNOWN INDICATION
  2. REBIF [Suspect]
     Indication: MULTIPLE SCLEROSIS
     Route: 058
     Dates: start: 20000101, end: 20120228

REACTIONS (11)
  - HYPERTENSION [None]
  - LIMB DISCOMFORT [None]
  - CARDIAC FAILURE [None]
  - DEPRESSION [None]
  - ASTHMA [None]
  - PULMONARY ARTERIAL HYPERTENSION [None]
  - RENAL FAILURE [None]
  - GASTROOESOPHAGEAL REFLUX DISEASE [None]
  - MUSCLE SPASTICITY [None]
  - DIABETES MELLITUS [None]
  - HEADACHE [None]
